FAERS Safety Report 5553733-8 (Version None)
Quarter: 2007Q4

REPORT INFORMATION
  Report Type: 
  Country: None (occurrence: None)
  Receive Date: 20071213
  Receipt Date: 20070713
  Transmission Date: 20080405
  Serious: No
  Sender: FDA-Public Use
  Company Number: US-AMGEN-KDL228941

PATIENT
  Sex: Female
  Weight: 57 kg

DRUGS (5)
  1. ENBREL [Suspect]
     Indication: JUVENILE ARTHRITIS
     Route: 058
     Dates: start: 20060301, end: 20070601
  2. IBUPROFEN [Concomitant]
  3. MINOCIN [Concomitant]
  4. MISOPROSTOL [Concomitant]
  5. PLAQUENIL [Concomitant]
     Dates: start: 20070501

REACTIONS (6)
  - INJECTION SITE BRUISING [None]
  - INJECTION SITE PAIN [None]
  - JOINT DESTRUCTION [None]
  - JUVENILE ARTHRITIS [None]
  - MIGRAINE [None]
  - VERTIGO [None]
